FAERS Safety Report 8222858-0 (Version None)
Quarter: 2012Q1

REPORT INFORMATION
  Report Type: 
  Country: None (occurrence: None)
  Receive Date: 20120320
  Receipt Date: 20120312
  Transmission Date: 20120608
  Serious: Yes (Hospitalization)
  Sender: FDA-Public Use
  Company Number: US-ASTRAZENECA-2011SE41525

PATIENT
  Age: 51 Year
  Sex: Female

DRUGS (11)
  1. NEXIUM [Suspect]
     Indication: GASTROOESOPHAGEAL REFLUX DISEASE
     Route: 048
     Dates: start: 20060101
  2. CALCIUM CARBONATE [Concomitant]
     Indication: OSTEOPOROSIS
     Dates: start: 20050101
  3. ATACAND HCT [Concomitant]
     Dosage: 32/12.5MG
  4. BENICAR HCT [Concomitant]
     Dosage: 40/12.5MG
  5. NEXIUM [Suspect]
     Route: 048
     Dates: start: 20050101, end: 20120101
  6. PLAVIX [Concomitant]
  7. ISOSORBIDE DINITRATE [Concomitant]
  8. GABAPENTIN [Concomitant]
  9. SPIRONOLACT [Concomitant]
  10. TRAMADOL HCL [Concomitant]
  11. SINGULAIR [Concomitant]

REACTIONS (4)
  - LOWER LIMB FRACTURE [None]
  - ANKLE FRACTURE [None]
  - UPPER LIMB FRACTURE [None]
  - EMOTIONAL DISTRESS [None]
